FAERS Safety Report 7185732-7 (Version None)
Quarter: 2010Q4

REPORT INFORMATION
  Report Type: 
  Country: None (occurrence: None)
  Receive Date: 20101222
  Receipt Date: 20101216
  Transmission Date: 20110411
  Serious: Yes (Other)
  Sender: FDA-Public Use
  Company Number: DE-BAXTER-2010BH026354

PATIENT
  Age: 70 Year
  Sex: Female
  Weight: 79 kg

DRUGS (4)
  1. GAMMAGARD LIQUID [Suspect]
     Indication: INFECTION PROPHYLAXIS
     Route: 042
     Dates: start: 20101015, end: 20101015
  2. GAMMAGARD LIQUID [Suspect]
     Route: 042
     Dates: start: 20101015, end: 20101015
  3. THALIDOMIDE [Concomitant]
     Indication: PLASMACYTOMA
     Route: 048
     Dates: start: 20101004
  4. PREDNISOLONE [Concomitant]
     Indication: PLASMACYTOMA
     Route: 048
     Dates: start: 20101015

REACTIONS (2)
  - ANAPHYLACTIC REACTION [None]
  - CHILLS [None]
